FAERS Safety Report 8208951-7 (Version None)
Quarter: 2012Q1

REPORT INFORMATION
  Report Type: 
  Country: None (occurrence: None)
  Receive Date: 20120314
  Receipt Date: 20120307
  Transmission Date: 20120608
  Serious: Yes (Hospitalization)
  Sender: FDA-Public Use
  Company Number: US-BAYER-2010-001359

PATIENT
  Age: 41 Year
  Sex: Female
  Weight: 68.934 kg

DRUGS (10)
  1. ATIVAN [Concomitant]
     Dosage: OCCASIONAL
     Route: 048
  2. ATARAX [Concomitant]
     Indication: PRURITUS
     Dosage: 0.5 MG, PRN
  3. YAZ [Suspect]
     Indication: VULVOVAGINAL DRYNESS
     Dosage: UNK
     Dates: start: 20080801, end: 20080801
  4. YAZ [Suspect]
     Indication: ANORGASMIA
  5. NASONEX [Concomitant]
     Dosage: 50 MCG, 2 SPRAYS EVERY DAY
     Route: 045
  6. ASPIRIN [Concomitant]
     Dosage: 325 MG, DAILY
     Route: 048
  7. ATENOLOL [Concomitant]
     Dosage: 12.5 MG, BID
     Route: 048
  8. CYMBALTA [Concomitant]
     Dosage: 30 MG, DAILY
     Route: 048
  9. YAZ [Suspect]
     Indication: INSOMNIA
  10. LEVAQUIN [Concomitant]
     Dosage: 750 MG, DAILY
     Route: 048

REACTIONS (4)
  - DEPRESSION [None]
  - PULMONARY EMBOLISM [None]
  - ANXIETY [None]
  - SLEEP DISORDER [None]
